FAERS Safety Report 4475677-5 (Version None)
Quarter: 2004Q3

REPORT INFORMATION
  Report Type: 
  Country: None (occurrence: None)
  Receive Date: 20040923
  Receipt Date: 20040715
  Transmission Date: 20050211
  Serious: No
  Sender: FDA-Public Use
  Company Number: USA040772789

PATIENT
  Age: 61 Year
  Sex: Female

DRUGS (5)
  1. FORTEO [Suspect]
     Indication: OSTEOPOROSIS
     Dates: start: 20040713
  2. OSCAL (CALCIUM CARBONATE) [Concomitant]
  3. LIPITOR [Concomitant]
  4. BABY ASPIRIN (ACDTYLSALICYLIC ACID) [Concomitant]
  5. MULTIVITAMIN [Concomitant]

REACTIONS (1)
  - INJECTION SITE ANAESTHESIA [None]
